FAERS Safety Report 4849278-0 (Version None)
Quarter: 2005Q4

REPORT INFORMATION
  Report Type: 
  Country: None (occurrence: None)
  Receive Date: 20051209
  Receipt Date: 20051130
  Transmission Date: 20060501
  Serious: Yes (Hospitalization)
  Sender: FDA-Public Use
  Company Number: US-JNJFOC-20051200929

PATIENT
  Age: 84 Year
  Sex: Female

DRUGS (7)
  1. TYLENOL (CAPLET) [Suspect]
  2. TYLENOL (CAPLET) [Suspect]
     Indication: PAIN
  3. TOPROL-XL [Concomitant]
  4. ASPIRIN [Concomitant]
  5. LIPITOR [Concomitant]
  6. THYROID PILL [Concomitant]
  7. NEXIUM [Concomitant]

REACTIONS (2)
  - PAIN [None]
  - SYNCOPE [None]
